FAERS Safety Report 8602481 (Version 4)
Quarter: 2013Q1

REPORT INFORMATION
  Report Type: Spontaneous
  Country: US (occurrence: US)
  Receive Date: 20120607
  Receipt Date: 20130301
  Transmission Date: 20140127
  Serious: Yes (Other)
  Sender: FDA-Public Use
  Company Number: US-PFIZER INC-2012135335

PATIENT
  Age: 86 Year
  Sex: Female
  Weight: 81.63 kg

DRUGS (2)
  1. ZOLOFT [Suspect]
     Indication: DEPRESSION
     Dosage: 50 MG, 1X/DAY
     Route: 048
     Dates: start: 2007, end: 201204
  2. LYRICA [Concomitant]
     Indication: FIBROMYALGIA
     Dosage: UNK

REACTIONS (4)
  - Lower respiratory tract infection [Not Recovered/Not Resolved]
  - Depression [Not Recovered/Not Resolved]
  - Pharyngeal disorder [Not Recovered/Not Resolved]
  - Nasopharyngitis [Not Recovered/Not Resolved]
